FAERS Safety Report 8310442-X (Version None)
Quarter: 2012Q2

REPORT INFORMATION
  Report Type: 
  Country: None (occurrence: None)
  Receive Date: 20120425
  Receipt Date: 20120411
  Transmission Date: 20120825
  Serious: Yes (Death, Life-Threatening)
  Sender: FDA-Public Use
  Company Number: JP-ROCHE-1021446

PATIENT
  Sex: Female
  Weight: 43 kg

DRUGS (11)
  1. LASIX [Concomitant]
     Indication: OEDEMA
     Route: 048
     Dates: start: 20100514, end: 20111202
  2. VILDAGLIPTIN [Concomitant]
     Indication: DIABETES MELLITUS
     Route: 048
     Dates: start: 20111007, end: 20111110
  3. SODIUM BICARBONATE [Concomitant]
     Indication: ACIDOSIS
     Route: 048
     Dates: start: 20100414, end: 20111202
  4. ATELEC [Concomitant]
     Indication: HYPERTENSION
     Route: 048
     Dates: start: 20100514, end: 20111202
  5. FRANDOL S [Concomitant]
     Indication: CARDIAC VALVE DISEASE
     Route: 061
     Dates: start: 20101015, end: 20111202
  6. LANSOPRAZOLE [Concomitant]
     Indication: PROPHYLAXIS
     Route: 048
     Dates: start: 20101015, end: 20111202
  7. GASMOTIN [Concomitant]
     Indication: GASTRITIS
     Route: 048
     Dates: start: 20110917, end: 20111202
  8. MIRCERA [Suspect]
     Indication: NEPHROGENIC ANAEMIA
     Route: 058
     Dates: start: 20111107, end: 20111110
  9. COTRIM [Concomitant]
     Indication: URINARY TRACT INFECTION
     Route: 048
     Dates: start: 20110927, end: 20111110
  10. ASPIRIN [Concomitant]
     Indication: CEREBRAL ISCHAEMIA
     Route: 048
     Dates: start: 20100526, end: 20111202
  11. PURSENNID [Concomitant]
     Indication: CONSTIPATION
     Dosage: SINGLE USE
     Route: 048
     Dates: start: 20100428, end: 20111202

REACTIONS (2)
  - HYPOXIC-ISCHAEMIC ENCEPHALOPATHY [None]
  - HYPERTENSIVE ENCEPHALOPATHY [None]
